FAERS Safety Report 7593038-7 (Version None)
Quarter: 2011Q3

REPORT INFORMATION
  Report Type: 
  Country: None (occurrence: None)
  Receive Date: 20110706
  Receipt Date: 20110630
  Transmission Date: 20111222
  Serious: Yes (Death, Hospitalization)
  Sender: FDA-Public Use
  Company Number: US-ROCHE-784513

PATIENT
  Sex: Female
  Weight: 89.5 kg

DRUGS (21)
  1. BEVACIZUMAB [Suspect]
     Indication: BREAST CANCER
     Dosage: DATE OF LAST DOSE:12 MAY 2011.
     Route: 042
     Dates: start: 20100825
  2. LYRICA [Concomitant]
     Route: 048
  3. PACLITAXEL [Suspect]
     Indication: BREAST CANCER
     Dosage: DATE OF LAST DOSE:8 DECEMBER 2010
     Route: 065
     Dates: start: 20100825
  4. KYTRIL [Concomitant]
     Dosage: LAST DOSE:18 MAY 2011.
     Dates: start: 20100825
  5. GLUCOPHAGE XR [Concomitant]
     Dosage: AT NIGHT
     Route: 048
  6. XANAX [Concomitant]
     Route: 048
  7. ZOCOR [Concomitant]
     Route: 048
  8. CIPROFLOXACIN [Concomitant]
     Dates: start: 20101020
  9. ZOLOFT [Concomitant]
     Route: 048
  10. ARANESP [Concomitant]
     Dosage: DATE OF LAST DOSE:22 FEB 2011
     Dates: start: 20101027
  11. RESTORIL [Concomitant]
     Dosage: AT NIGHT
     Dates: start: 20100728
  12. LOMOTIL [Concomitant]
     Dosage: 2.5/0.025 MG
     Dates: start: 20110215
  13. NEUPOGEN [Concomitant]
     Dosage: LAST DOSE:09 DEC 2010
     Dates: start: 20101006
  14. ONDANSETRON [Concomitant]
     Dates: start: 20100824
  15. PROMETHAZINE HCL [Concomitant]
     Dates: start: 20100824
  16. GLUCOTROL [Concomitant]
     Route: 048
  17. LISINOPRIL [Concomitant]
     Route: 048
  18. ACYCLOVIR [Concomitant]
     Dates: start: 20100824
  19. DEXAMETHASONE DISODIUM PHOSPHATE [Concomitant]
     Dosage: LAST DSOE:02 FEB 2011.
     Dates: start: 20100825
  20. NEXIUM [Concomitant]
     Route: 048
  21. SYNTHROID [Concomitant]
     Route: 048

REACTIONS (2)
  - HEPATIC FAILURE [None]
  - THROMBOCYTOPENIA [None]
